FAERS Safety Report 8514396 (Version 6)
Quarter: 2013Q4

REPORT INFORMATION
  Report Type: Spontaneous
  Country: JP (occurrence: JP)
  Receive Date: 20120416
  Receipt Date: 20131106
  Transmission Date: 20140711
  Serious: Yes (Life-Threatening, Disabling, Other)
  Sender: FDA-Public Use
  Company Number: JP-MSD-1204USA01520

PATIENT
  Age: 65 Year
  Sex: Female
  Weight: 151 kg

DRUGS (2)
  1. JANUVIA [Suspect]
     Indication: DIABETES MELLITUS MANAGEMENT
     Dosage: 50 MG, QD
     Route: 048
     Dates: start: 20111230, end: 20120406
  2. LANTUS [Concomitant]
     Dosage: 14 UNDER1000UNIT 21 O^CLOCK
     Route: 058
     Dates: start: 20111230

REACTIONS (4)
  - Altered state of consciousness [Recovered/Resolved]
  - Convulsion [Recovered/Resolved]
  - Rheumatoid arthritis [Not Recovered/Not Resolved]
  - Dementia [Recovered/Resolved]
